FAERS Safety Report 6032653-9 (Version None)
Quarter: 2008Q4

REPORT INFORMATION
  Report Type: 
  Country: None (occurrence: None)
  Receive Date: 20081224
  Receipt Date: 20081021
  Transmission Date: 20090506
  Serious: No
  Sender: FDA-Public Use
  Company Number: 2008PV036960

PATIENT
  Age: 68 Year
  Sex: Female

DRUGS (5)
  1. SYMLIN [Suspect]
     Indication: TYPE 2 DIABETES MELLITUS
     Dosage: 120 MCG;TID;SC; 90 MCG;TID;SC; 60 MCG;TID;SC
     Route: 058
     Dates: start: 20080801, end: 20080801
  2. SYMLIN [Suspect]
     Indication: TYPE 2 DIABETES MELLITUS
     Dosage: 120 MCG;TID;SC; 90 MCG;TID;SC; 60 MCG;TID;SC
     Route: 058
     Dates: start: 20080801, end: 20080801
  3. SYMLIN [Suspect]
     Indication: TYPE 2 DIABETES MELLITUS
     Dosage: 120 MCG;TID;SC; 90 MCG;TID;SC; 60 MCG;TID;SC
     Route: 058
     Dates: start: 20080801, end: 20081001
  4. HUMALOG MIX 75/25 [Concomitant]
  5. LYRICA [Concomitant]

REACTIONS (1)
  - BLOOD GLUCOSE INCREASED [None]
